FAERS Safety Report 16634565 (Version 1)
Quarter: 2019Q3

REPORT INFORMATION
  Report Type: Spontaneous
  Country: US (occurrence: US)
  Receive Date: 20190726
  Receipt Date: 20190726
  Transmission Date: 20191004
  Serious: Yes (Hospitalization)
  Sender: FDA-Public Use
  Company Number: US-ROCHE-2363955

PATIENT
  Age: 82 Year
  Sex: Male

DRUGS (6)
  1. NOVOLIN [Concomitant]
     Active Substance: INSULIN HUMAN
  2. FOLIC ACID. [Concomitant]
     Active Substance: FOLIC ACID
     Route: 065
  3. MICROZIDE [HYDROCHLOROTHIAZIDE] [Concomitant]
     Route: 065
  4. LOSARTAN. [Concomitant]
     Active Substance: LOSARTAN
     Route: 065
  5. ESBRIET [Suspect]
     Active Substance: PIRFENIDONE
     Indication: IDIOPATHIC PULMONARY FIBROSIS
     Route: 048
     Dates: start: 20180731
  6. LOVASTATIN. [Concomitant]
     Active Substance: LOVASTATIN
     Route: 065

REACTIONS (1)
  - Blood glucose decreased [Not Recovered/Not Resolved]

NARRATIVE: CASE EVENT DATE: 20190715
